FAERS Safety Report 5372321-X (Version None)
Quarter: 2007Q2

REPORT INFORMATION
  Report Type: 
  Country: None (occurrence: None)
  Receive Date: 20070627
  Receipt Date: 20070511
  Transmission Date: 20071010
  Serious: No
  Sender: FDA-Public Use
  Company Number: US-BRISTOL-MYERS SQUIBB COMPANY-13776950

PATIENT
  Age: 48 Year
  Sex: Male

DRUGS (1)
  1. BARACLUDE [Suspect]

REACTIONS (1)
  - PAIN [None]
